FAERS Safety Report 14019939 (Version 1)
Quarter: 2017Q3

REPORT INFORMATION
  Report Type: Spontaneous
  Country: US (occurrence: US)
  Receive Date: 20170928
  Receipt Date: 20170928
  Transmission Date: 20171128
  Serious: No
  Sender: FDA-Public Use
  Company Number: US-ALLERGAN-1749230US

PATIENT
  Age: 41 Year
  Sex: Female

DRUGS (6)
  1. DOXEPIN [Concomitant]
     Active Substance: DOXEPIN
  2. LITHIUM. [Concomitant]
     Active Substance: LITHIUM
  3. VRAYLAR [Suspect]
     Active Substance: CARIPRAZINE
     Dosage: 1.5 MG, UNK
     Dates: start: 20170719, end: 20170802
  4. KLONOPIN [Concomitant]
     Active Substance: CLONAZEPAM
  5. VRAYLAR [Suspect]
     Active Substance: CARIPRAZINE
     Indication: BIPOLAR DISORDER
     Dosage: 4.5 MG, UNK
     Dates: start: 201708, end: 201708
  6. VRAYLAR [Suspect]
     Active Substance: CARIPRAZINE
     Dosage: 2 MG, UNK
     Dates: start: 201708, end: 201708

REACTIONS (5)
  - Rash [Recovering/Resolving]
  - Muscle spasms [Recovered/Resolved]
  - Gait disturbance [Not Recovered/Not Resolved]
  - Swelling face [Recovered/Resolved]
  - Parosmia [Recovered/Resolved]

NARRATIVE: CASE EVENT DATE: 201708
